FAERS Safety Report 9343096 (Version 1)
Quarter: 2013Q2

REPORT INFORMATION
  Report Type: Spontaneous
  Country: GB (occurrence: GB)
  Receive Date: 20130611
  Receipt Date: 20130611
  Transmission Date: 20140414
  Serious: Yes (Life-Threatening)
  Sender: FDA-Public Use
  Company Number: PHHY2013GB058512

PATIENT
  Age: 54 Year
  Sex: Female
  Weight: 60 kg

DRUGS (5)
  1. CARBOPLATIN [Suspect]
     Indication: OVARIAN CANCER METASTATIC
     Dosage: 320 MG
     Route: 042
     Dates: start: 2007, end: 20130528
  2. CITALOPRAM [Concomitant]
  3. FENTANYL [Concomitant]
  4. PROPRANOLOL [Concomitant]
  5. BEVACIZUMAB [Concomitant]

REACTIONS (3)
  - Circulatory collapse [Recovering/Resolving]
  - Pulse absent [Recovered/Resolved]
  - Blood pressure abnormal [Unknown]
